FAERS Safety Report 4685929-1 (Version None)
Quarter: 2005Q2

REPORT INFORMATION
  Report Type: 
  Country: None (occurrence: None)
  Receive Date: 20050606
  Receipt Date: 20050525
  Transmission Date: 20051028
  Serious: Yes (Hospitalization, Other)
  Sender: FDA-Public Use
  Company Number: HQWYE589221FEB03

PATIENT
  Age: 53 Year
  Sex: Female

DRUGS (6)
  1. MYLOTARG [Suspect]
     Indication: ACUTE MYELOID LEUKAEMIA
     Dosage: 19 MG 1X PER 1 DAY, INTRAVENOUS
     Route: 042
     Dates: start: 20030205, end: 20030205
  2. AMICAR [Concomitant]
  3. CIPRO [Concomitant]
  4. METOCLOPRAMIDE [Concomitant]
  5. ACYCLOVIR [Concomitant]
  6. DIFLUCAN [Concomitant]

REACTIONS (3)
  - FEBRILE NEUTROPENIA [None]
  - HEADACHE [None]
  - PANCYTOPENIA [None]
